FAERS Safety Report 12771526 (Version 1)
Quarter: 2016Q3

REPORT INFORMATION
  Report Type: Report from Study
  Country: US (occurrence: US)
  Receive Date: 20160922
  Receipt Date: 20160922
  Transmission Date: 20161109
  Serious: Yes (Hospitalization, Other)
  Sender: FDA-Public Use
  Company Number: US-BIOGEN-2008BI026805

PATIENT
  Age: 42 Year
  Sex: Female

DRUGS (4)
  1. AVONEX [Suspect]
     Active Substance: INTERFERON BETA-1A
     Route: 030
     Dates: start: 20100613, end: 20140831
  2. AVONEX [Suspect]
     Active Substance: INTERFERON BETA-1A
     Route: 030
     Dates: start: 2014, end: 20140831
  3. AVONEX [Suspect]
     Active Substance: INTERFERON BETA-1A
     Indication: MULTIPLE SCLEROSIS
     Route: 030
     Dates: start: 20050424, end: 20081201
  4. AVONEX [Suspect]
     Active Substance: INTERFERON BETA-1A
     Route: 030
     Dates: start: 20100525

REACTIONS (22)
  - Infusion site bruising [Not Recovered/Not Resolved]
  - Weight increased [Recovered/Resolved]
  - Visual impairment [Recovered/Resolved]
  - Asthenia [Not Recovered/Not Resolved]
  - Loss of control of legs [Not Recovered/Not Resolved]
  - White blood cell count increased [Recovered/Resolved]
  - Coordination abnormal [Recovered/Resolved]
  - Procedural anxiety [Recovered/Resolved]
  - Diverticulitis [Recovered/Resolved]
  - Postoperative renal failure [Recovered/Resolved]
  - Dysphemia [Recovered/Resolved]
  - Limb deformity [Recovered/Resolved]
  - Tremor [Recovered/Resolved]
  - Blindness unilateral [Not Recovered/Not Resolved]
  - Swelling face [Recovered/Resolved]
  - Gait disturbance [Recovered/Resolved]
  - Influenza like illness [Recovered/Resolved]
  - Intestinal perforation [Recovered/Resolved]
  - Peripheral swelling [Recovered/Resolved]
  - Weight decreased [Not Recovered/Not Resolved]
  - Injury associated with device [Recovered/Resolved]
  - Rectal haemorrhage [Not Recovered/Not Resolved]

NARRATIVE: CASE EVENT DATE: 20050424
